FAERS Safety Report 5903695-6 (Version None)
Quarter: 2008Q3

REPORT INFORMATION
  Report Type: 
  Country: None (occurrence: None)
  Receive Date: 20080930
  Receipt Date: 20080922
  Transmission Date: 20090109
  Serious: Yes (Other)
  Sender: FDA-Public Use
  Company Number: US-ROXANE LABORATORIES, INC.-2008-RO-00063RO

PATIENT
  Age: 63 Year
  Sex: Female

DRUGS (16)
  1. FLUCONAZOLE [Suspect]
     Indication: ORAL CANDIDIASIS
     Dates: start: 20040401
  2. FLUCONAZOLE [Suspect]
     Indication: ALLERGENIC DESENSITISATION PROCEDURE
     Dates: start: 20040401
  3. PREDNISONE [Suspect]
     Indication: RASH MACULAR
     Dates: start: 20070401
  4. PREDNISONE [Suspect]
     Indication: ASTHMA
     Dosage: 10MG
     Dates: start: 20070901
  5. PREDNISONE [Suspect]
     Dosage: 60MG
  6. ADVAIR DISKUS 100/50 [Suspect]
     Indication: ASTHMA
     Dates: start: 19990101
  7. SINGULAIR [Suspect]
     Indication: ASTHMA
     Dosage: 10MG
     Dates: start: 19990101
  8. STERIODS [Suspect]
     Indication: ASTHMA
     Route: 048
     Dates: start: 19990101
  9. NYSTATIN [Suspect]
     Indication: ORAL CANDIDIASIS
  10. MYCELEX [Suspect]
     Indication: ORAL CANDIDIASIS
  11. DIPHENHYDRAMINE HCL [Concomitant]
     Indication: RESPIRATORY DISORDER
     Dates: start: 20040401
  12. DIPHENHYDRAMINE HCL [Concomitant]
     Indication: RASH MACULAR
     Dates: start: 20070401
  13. DIPHENHYDRAMINE HCL [Concomitant]
     Indication: URTICARIA
  14. ALBUTEROL METERED DOSE INHALER [Concomitant]
     Indication: RESPIRATORY DISORDER
     Route: 055
     Dates: start: 20040401
  15. ANTIHISTAMINE [Concomitant]
     Indication: URTICARIA
     Dates: start: 20040701
  16. METHYLCELLULOSE SOLUTION [Concomitant]
     Indication: ALLERGENIC DESENSITISATION PROCEDURE
     Dates: start: 20040401

REACTIONS (6)
  - ASTHMA [None]
  - BLOOD IMMUNOGLOBULIN E [None]
  - RASH [None]
  - RASH MACULAR [None]
  - RESPIRATORY DISORDER [None]
  - URTICARIA [None]
